FAERS Safety Report 23647652 (Version 1)
Quarter: 2024Q1

REPORT INFORMATION
  Report Type: Report from Study
  Country: IT (occurrence: IT)
  Receive Date: 20240319
  Receipt Date: 20240319
  Transmission Date: 20240409
  Serious: Yes (Other)
  Sender: FDA-Public Use
  Company Number: IT-SA-2023SA312694

PATIENT
  Age: 60 Year
  Sex: Male

DRUGS (3)
  1. ELOCTA [Suspect]
     Active Substance: EFMOROCTOCOG ALFA
     Indication: Factor VIII deficiency
     Dosage: 40 IU/KG, Q3D (EVERY 72 HOURS)
     Route: 042
  2. ELOCTA [Suspect]
     Active Substance: EFMOROCTOCOG ALFA
     Indication: Factor VIII deficiency
     Dosage: 40 IU/KG, Q3D (EVERY 72 HOURS)
     Route: 042
  3. INVESTIGATIONAL PRODUCT [Suspect]
     Active Substance: INVESTIGATIONAL PRODUCT

REACTIONS (1)
  - Muscle haemorrhage [Unknown]
